FAERS Safety Report 8615659 (Version 2)
Quarter: 2012Q4

REPORT INFORMATION
  Report Type: 
  Country: US (occurrence: US)
  Receive Date: 20120614
  Receipt Date: 20120927
  Transmission Date: 20130627
  Serious: No
  Sender: FDA-Public Use
  Company Number: US-AMGEN-USASP2012024414

PATIENT
  Age: 82 Year
  Sex: Female
  Weight: 66 kg

DRUGS (14)
  1. PROLIA [Suspect]
     Indication: OSTEOPOROSIS POSTMENOPAUSAL
     Dosage: 60 mg, q6mo
     Route: 058
     Dates: start: 20120417, end: 20120430
  2. TRAMADOL [Concomitant]
     Dosage: 50 mg, tid
  3. ATENOLOL [Concomitant]
     Indication: HYPERTENSION
     Dosage: 50 mg, qd
  4. VITAMINS NOS [Concomitant]
     Dosage: UNK
  5. B12 [Concomitant]
     Dosage: 1 mg, qd
     Route: 048
  6. K1 [Concomitant]
     Dosage: 1 mg, qd
     Route: 048
  7. K2SOL [Concomitant]
     Dosage: 100 mug, qd
     Route: 048
  8. COQ10 [Concomitant]
     Dosage: 200 mg, qd
     Route: 048
  9. FOLIC ACID [Concomitant]
     Dosage: 1 mg, qd
     Route: 048
  10. MEDROL [Concomitant]
     Dosage: UNK
  11. OMEPRAZOLE [Concomitant]
     Dosage: 20 mg, qd
  12. LANSOPRAZOLE [Concomitant]
     Dosage: UNK UNK, qd
  13. IBUPROFEN [Concomitant]
     Dosage: 600 mg, bid
     Route: 048
  14. VITAMIN D3 [Concomitant]
     Dosage: 5000 IU, qd
     Route: 048

REACTIONS (38)
  - Frequent bowel movements [Not Recovered/Not Resolved]
  - Pain [Not Recovered/Not Resolved]
  - Pruritus generalised [Not Recovered/Not Resolved]
  - Diarrhoea [Not Recovered/Not Resolved]
  - Dry mouth [Not Recovered/Not Resolved]
  - Eye pruritus [Not Recovered/Not Resolved]
  - Gait disturbance [Not Recovered/Not Resolved]
  - Night sweats [Not Recovered/Not Resolved]
  - Antinuclear antibody positive [Unknown]
  - Arthritis [Unknown]
  - Atrophic vulvovaginitis [Unknown]
  - Urinary tract infection [Unknown]
  - Vein disorder [Unknown]
  - Eye irritation [Not Recovered/Not Resolved]
  - Decreased appetite [Unknown]
  - Neck pain [Not Recovered/Not Resolved]
  - Vision blurred [Unknown]
  - Nail growth abnormal [Unknown]
  - Lip dry [Unknown]
  - Hyperhidrosis [Not Recovered/Not Resolved]
  - Hot flush [Unknown]
  - Pallor [Unknown]
  - Hypoaesthesia [Unknown]
  - Varicose vein [Unknown]
  - Activities of daily living impaired [Unknown]
  - Dysuria [Unknown]
  - Swollen tongue [Unknown]
  - Dyspnoea [Unknown]
  - Pollakiuria [Unknown]
  - Pelvic pain [Unknown]
  - Abdominal pain [Unknown]
  - Oedema peripheral [Not Recovered/Not Resolved]
  - Back pain [Not Recovered/Not Resolved]
  - Myalgia [Unknown]
  - Asthenia [Not Recovered/Not Resolved]
  - Constipation [Unknown]
  - Rash [Not Recovered/Not Resolved]
  - Pain in extremity [Unknown]
